FAERS Safety Report 6844735-X (Version None)
Quarter: 2010Q3

REPORT INFORMATION
  Report Type: 
  Country: None (occurrence: None)
  Receive Date: 20100715
  Receipt Date: 20100713
  Transmission Date: 20110219
  Serious: Yes (Death)
  Sender: FDA-Public Use
  Company Number: IT-BRISTOL-MYERS SQUIBB COMPANY-15178205

PATIENT
  Age: 30 Year
  Sex: Female

DRUGS (3)
  1. ABILIFY [Suspect]
     Indication: BIPOLAR DISORDER
     Route: 048
     Dates: start: 20081017, end: 20100101
  2. RIVOTRIL [Suspect]
     Indication: BIPOLAR DISORDER
     Dosage: 1 DF= 2.5MG 7ML DROPS
     Route: 048
  3. LEXOTAN [Suspect]

REACTIONS (2)
  - ADJUSTMENT DISORDER WITH DEPRESSED MOOD [None]
  - COMPLETED SUICIDE [None]
